FAERS Safety Report 4293431-4 (Version None)
Quarter: 2004Q1

REPORT INFORMATION
  Report Type: 
  Country: None (occurrence: None)
  Receive Date: 20040210
  Receipt Date: 20040129
  Transmission Date: 20041129
  Serious: Yes (Hospitalization)
  Sender: FDA-Public Use
  Company Number: 04P-114-0249280-00

PATIENT
  Age: 2 Year
  Sex: Female

DRUGS (1)
  1. BIAXIN [Suspect]
     Indication: LOWER RESPIRATORY TRACT INFECTION
     Dosage: 2.5 ML, 2 IN 1 D
     Dates: start: 20031217, end: 20031223

REACTIONS (1)
  - DIABETES MELLITUS [None]
